FAERS Safety Report 4753478-8 (Version None)
Quarter: 2005Q3

REPORT INFORMATION
  Report Type: 
  Country: None (occurrence: None)
  Receive Date: 20050826
  Receipt Date: 20050816
  Transmission Date: 20060218
  Serious: Yes (Other)
  Sender: FDA-Public Use
  Company Number: 2005AP04444

PATIENT
  Age: 85 Year
  Sex: Male

DRUGS (2)
  1. CASODEX [Suspect]
     Indication: PROSTATE CANCER
     Route: 048
     Dates: start: 20050724, end: 20050805
  2. LEUPLIN [Suspect]
     Indication: PROSTATE CANCER
     Route: 058
     Dates: start: 20050601

REACTIONS (3)
  - ARRHYTHMIA [None]
  - CARDIAC FAILURE [None]
  - INTERSTITIAL LUNG DISEASE [None]
